FAERS Safety Report 13123719 (Version 2)
Quarter: 2017Q2

REPORT INFORMATION
  Report Type: Spontaneous
  Country: FR (occurrence: FR)
  Receive Date: 20170117
  Receipt Date: 20170426
  Transmission Date: 20170830
  Serious: Yes (Hospitalization)
  Sender: FDA-Public Use
  Company Number: FR-ROCHE-1880320

PATIENT
  Age: 73 Year
  Sex: Female

DRUGS (11)
  1. PERJETA [Suspect]
     Active Substance: PERTUZUMAB
     Indication: BREAST CANCER METASTATIC
     Route: 042
     Dates: start: 201610
  2. PRAVASTATIN. [Concomitant]
     Active Substance: PRAVASTATIN
  3. HERCEPTIN [Suspect]
     Active Substance: TRASTUZUMAB
     Indication: BREAST CANCER METASTATIC
     Route: 042
     Dates: start: 201610
  4. ACEBUTOLOL [Concomitant]
     Active Substance: ACEBUTOLOL
  5. PACLITAXEL. [Suspect]
     Active Substance: PACLITAXEL
     Indication: BREAST CANCER METASTATIC
     Route: 042
     Dates: start: 201610, end: 20161216
  6. ZOPICLONE [Concomitant]
     Active Substance: ZOPICLONE
  7. SECTRAL [Concomitant]
     Active Substance: ACEBUTOLOL HYDROCHLORIDE
  8. XANAX [Concomitant]
     Active Substance: ALPRAZOLAM
  9. TEMESTA (FRANCE) [Concomitant]
     Active Substance: LORAZEPAM
  10. GANFORT [Concomitant]
     Active Substance: BIMATOPROST\TIMOLOL
  11. QUITAXON [Concomitant]
     Active Substance: DOXEPIN HYDROCHLORIDE

REACTIONS (2)
  - Eczema [Recovered/Resolved]
  - Interstitial lung disease [Recovered/Resolved]

NARRATIVE: CASE EVENT DATE: 201610
